FAERS Safety Report 8346679-3 (Version None)
Quarter: 2012Q2

REPORT INFORMATION
  Report Type: 
  Country: None (occurrence: None)
  Receive Date: 20120509
  Receipt Date: 20120507
  Transmission Date: 20120825
  Serious: Yes (Hospitalization, Other)
  Sender: FDA-Public Use
  Company Number: PHHO2010US07309

PATIENT
  Sex: Female
  Weight: 96.8 kg

DRUGS (3)
  1. CERTICAN [Suspect]
     Indication: RENAL TRANSPLANT
     Dosage: 0.75 MG, BID
     Route: 048
     Dates: start: 20100502
  2. STEROIDS NOS [Suspect]
     Indication: RENAL TRANSPLANT
  3. CERTICAN [Suspect]
     Dosage: 3 MG, BID
     Route: 048
     Dates: end: 20100706

REACTIONS (11)
  - WOUND SECRETION [None]
  - WOUND COMPLICATION [None]
  - PSEUDOMONAS INFECTION [None]
  - DEVICE MALFUNCTION [None]
  - WOUND DEHISCENCE [None]
  - POSTOPERATIVE WOUND INFECTION [None]
  - BLOOD GLUCOSE INCREASED [None]
  - SEROMA [None]
  - ABDOMINAL TENDERNESS [None]
  - IMPAIRED HEALING [None]
  - ENTEROCOCCAL INFECTION [None]
